FAERS Safety Report 6810534-8 (Version None)
Quarter: 2010Q2

REPORT INFORMATION
  Report Type: 
  Country: None (occurrence: None)
  Receive Date: 20100630
  Receipt Date: 20100621
  Transmission Date: 20101027
  Serious: Yes (Other)
  Sender: FDA-Public Use
  Company Number: US-ABBOTT-10P-163-0649915-00

PATIENT
  Sex: Male
  Weight: 108.51 kg

DRUGS (3)
  1. HUMIRA [Suspect]
     Indication: PSORIASIS
     Route: 058
     Dates: start: 20091102, end: 20100101
  2. HUMIRA [Suspect]
     Route: 058
     Dates: start: 20100101
  3. HUMIRA [Suspect]
     Route: 058
     Dates: end: 20100527

REACTIONS (5)
  - GAIT DISTURBANCE [None]
  - HEPATITIS [None]
  - INFLUENZA [None]
  - PENILE INFECTION [None]
  - PENILE SWELLING [None]
